FAERS Safety Report 21047834 (Version 17)
Quarter: 2023Q2

REPORT INFORMATION
  Report Type: Report from Study
  Country: CN (occurrence: None)
  Receive Date: 20220706
  Receipt Date: 20230425
  Transmission Date: 20230721
  Serious: Yes (Hospitalization)
  Sender: FDA-Public Use
  Company Number: CN-ROCHE-3130814

PATIENT
  Age: 53 Year
  Sex: Female
  Weight: 73.3 kg

DRUGS (90)
  1. ATEZOLIZUMAB [Suspect]
     Active Substance: ATEZOLIZUMAB
     Indication: Lung adenocarcinoma
     Dosage: DOSE LAST STUDY DRUG ADMIN PRIOR AE AND SAE 1200 MG, START DATE OF MOST RECENT DOSE OF STUDY DRUG PR
     Route: 041
     Dates: start: 20211015
  2. BEVACIZUMAB [Suspect]
     Active Substance: BEVACIZUMAB
     Indication: Lung adenocarcinoma
     Dosage: DOSE LAST STUDY DRUG ADMIN PRIOR AE: 990 MG, DOSE LAST STUDY DRUG ADMIN PRIOR SAE: 1100 MG, START DA
     Route: 042
     Dates: start: 20211015
  3. CARBOPLATIN [Suspect]
     Active Substance: CARBOPLATIN
     Indication: Lung adenocarcinoma
     Dosage: DOSE LAST STUDY DRUG ADMIN PRIOR AE AND SAE IS 720 MG?START DATE OF MOST RECENT DOSE OF STUDY DRUG P
     Route: 042
     Dates: start: 20211015
  4. PEMETREXED [Suspect]
     Active Substance: PEMETREXED
     Indication: Lung adenocarcinoma
     Dosage: START DATE OF MOST RECENT DOSE OF STUDY DRUG PRIOR TO AE ON 17/DEC/2021?DOSE LAST STUDY DRUG ADMIN P
     Route: 042
     Dates: start: 20211015
  5. FOLIC ACID [Concomitant]
     Active Substance: FOLIC ACID
     Dates: start: 20211014
  6. DEXAMETHASONE ACETATE [Concomitant]
     Active Substance: DEXAMETHASONE ACETATE
     Route: 048
     Dates: start: 20211216, end: 20211218
  7. DEXAMETHASONE ACETATE [Concomitant]
     Active Substance: DEXAMETHASONE ACETATE
     Route: 048
     Dates: start: 20220106, end: 20220108
  8. DEXAMETHASONE ACETATE [Concomitant]
     Active Substance: DEXAMETHASONE ACETATE
     Route: 048
     Dates: start: 20220301, end: 20220303
  9. DEXAMETHASONE ACETATE [Concomitant]
     Active Substance: DEXAMETHASONE ACETATE
     Route: 048
     Dates: start: 20220207, end: 20220209
  10. DEXAMETHASONE ACETATE [Concomitant]
     Active Substance: DEXAMETHASONE ACETATE
     Route: 048
     Dates: start: 20220324, end: 20220326
  11. DEXAMETHASONE ACETATE [Concomitant]
     Active Substance: DEXAMETHASONE ACETATE
     Route: 048
     Dates: start: 20220413, end: 20220415
  12. DEXAMETHASONE ACETATE [Concomitant]
     Active Substance: DEXAMETHASONE ACETATE
     Route: 048
     Dates: start: 20220517, end: 20220519
  13. DEXAMETHASONE ACETATE [Concomitant]
     Active Substance: DEXAMETHASONE ACETATE
     Route: 042
     Dates: start: 20211213, end: 20211214
  14. DEXAMETHASONE ACETATE [Concomitant]
     Active Substance: DEXAMETHASONE ACETATE
     Route: 048
     Dates: start: 20220607, end: 20220609
  15. DEXAMETHASONE ACETATE [Concomitant]
     Active Substance: DEXAMETHASONE ACETATE
     Route: 048
     Dates: start: 20220705, end: 20220707
  16. DEXAMETHASONE ACETATE [Concomitant]
     Active Substance: DEXAMETHASONE ACETATE
     Route: 048
     Dates: start: 20220801, end: 20220803
  17. DEXAMETHASONE ACETATE [Concomitant]
     Active Substance: DEXAMETHASONE ACETATE
     Route: 048
     Dates: start: 20220824, end: 20220826
  18. DEXAMETHASONE ACETATE [Concomitant]
     Active Substance: DEXAMETHASONE ACETATE
     Route: 048
     Dates: start: 20220919, end: 20220921
  19. DEXAMETHASONE ACETATE [Concomitant]
     Active Substance: DEXAMETHASONE ACETATE
     Route: 048
     Dates: start: 20221011, end: 20221013
  20. FOSAPREPITANT DIMEGLUMINE [Concomitant]
     Active Substance: FOSAPREPITANT DIMEGLUMINE
     Dates: start: 20211217, end: 20211217
  21. TROPISETRON HYDROCHLORIDE [Concomitant]
     Active Substance: TROPISETRON HYDROCHLORIDE
     Dates: start: 20211217, end: 20211217
  22. TROPISETRON HYDROCHLORIDE [Concomitant]
     Active Substance: TROPISETRON HYDROCHLORIDE
     Dates: start: 20220208, end: 20220208
  23. TROPISETRON HYDROCHLORIDE [Concomitant]
     Active Substance: TROPISETRON HYDROCHLORIDE
     Dates: start: 20220325, end: 20220325
  24. TROPISETRON HYDROCHLORIDE [Concomitant]
     Active Substance: TROPISETRON HYDROCHLORIDE
     Dates: start: 20220107, end: 20220107
  25. TROPISETRON HYDROCHLORIDE [Concomitant]
     Active Substance: TROPISETRON HYDROCHLORIDE
     Dates: start: 20220302, end: 20220302
  26. TROPISETRON HYDROCHLORIDE [Concomitant]
     Active Substance: TROPISETRON HYDROCHLORIDE
     Dates: start: 20220413, end: 20220413
  27. TROPISETRON HYDROCHLORIDE [Concomitant]
     Active Substance: TROPISETRON HYDROCHLORIDE
     Dates: start: 20220518, end: 20220518
  28. TROPISETRON HYDROCHLORIDE [Concomitant]
     Active Substance: TROPISETRON HYDROCHLORIDE
     Dates: start: 20220608, end: 20220608
  29. TROPISETRON HYDROCHLORIDE [Concomitant]
     Active Substance: TROPISETRON HYDROCHLORIDE
     Dates: start: 20220706, end: 20220706
  30. TROPISETRON HYDROCHLORIDE [Concomitant]
     Active Substance: TROPISETRON HYDROCHLORIDE
     Dates: start: 20220802, end: 20220802
  31. TROPISETRON HYDROCHLORIDE [Concomitant]
     Active Substance: TROPISETRON HYDROCHLORIDE
     Dates: start: 20221012, end: 20221012
  32. METOCLOPRAMIDE DIHYDROCHLORIDE [Concomitant]
     Dates: start: 20211217, end: 20211217
  33. METOCLOPRAMIDE DIHYDROCHLORIDE [Concomitant]
     Dates: start: 20220107, end: 20220107
  34. METOCLOPRAMIDE DIHYDROCHLORIDE [Concomitant]
     Dates: start: 20220208, end: 20220208
  35. METOCLOPRAMIDE DIHYDROCHLORIDE [Concomitant]
     Dates: start: 20220302, end: 20220302
  36. METOCLOPRAMIDE DIHYDROCHLORIDE [Concomitant]
     Dates: start: 20220325, end: 20220325
  37. METOCLOPRAMIDE DIHYDROCHLORIDE [Concomitant]
     Dates: start: 20220413, end: 20220413
  38. METOCLOPRAMIDE DIHYDROCHLORIDE [Concomitant]
     Dates: start: 20220518, end: 20220518
  39. METOCLOPRAMIDE DIHYDROCHLORIDE [Concomitant]
     Dates: start: 20220608, end: 20220608
  40. METOCLOPRAMIDE DIHYDROCHLORIDE [Concomitant]
     Dates: start: 20220706, end: 20220706
  41. METOCLOPRAMIDE DIHYDROCHLORIDE [Concomitant]
     Dates: start: 20220802, end: 20220802
  42. METOCLOPRAMIDE DIHYDROCHLORIDE [Concomitant]
     Dates: start: 20220825, end: 20220825
  43. METOCLOPRAMIDE DIHYDROCHLORIDE [Concomitant]
     Dates: start: 20220920, end: 20220920
  44. METOCLOPRAMIDE DIHYDROCHLORIDE [Concomitant]
     Dates: start: 20221011, end: 20221011
  45. METOCLOPRAMIDE DIHYDROCHLORIDE [Concomitant]
     Dates: start: 20221012, end: 20221012
  46. OMEPRAZOLE SODIUM [Concomitant]
     Active Substance: OMEPRAZOLE SODIUM
     Dates: start: 20211217, end: 20211217
  47. OMEPRAZOLE SODIUM [Concomitant]
     Active Substance: OMEPRAZOLE SODIUM
     Dates: start: 20220208, end: 20220208
  48. OMEPRAZOLE SODIUM [Concomitant]
     Active Substance: OMEPRAZOLE SODIUM
     Dates: start: 20220302, end: 20220302
  49. OMEPRAZOLE SODIUM [Concomitant]
     Active Substance: OMEPRAZOLE SODIUM
     Dates: start: 20220107, end: 20220107
  50. THROMBOPOIETIN [Concomitant]
     Active Substance: THROMBOPOIETIN
     Dates: start: 20211217, end: 20211217
  51. MECAPEGFILGRASTIM [Concomitant]
     Active Substance: MECAPEGFILGRASTIM
     Dates: start: 20211217, end: 20211217
  52. DIPHENHYDRAMINE HYDROCHLORIDE [Concomitant]
     Active Substance: DIPHENHYDRAMINE HYDROCHLORIDE
     Route: 065
     Dates: start: 20220107, end: 20220107
  53. DIPHENHYDRAMINE HYDROCHLORIDE [Concomitant]
     Active Substance: DIPHENHYDRAMINE HYDROCHLORIDE
     Dates: start: 20220208, end: 20220208
  54. DIPHENHYDRAMINE HYDROCHLORIDE [Concomitant]
     Active Substance: DIPHENHYDRAMINE HYDROCHLORIDE
     Dates: start: 20220302, end: 20220302
  55. DIPHENHYDRAMINE HYDROCHLORIDE [Concomitant]
     Active Substance: DIPHENHYDRAMINE HYDROCHLORIDE
     Dates: start: 20220325, end: 20220325
  56. DIPHENHYDRAMINE HYDROCHLORIDE [Concomitant]
     Active Substance: DIPHENHYDRAMINE HYDROCHLORIDE
     Dates: start: 20220413, end: 20220413
  57. DIPHENHYDRAMINE HYDROCHLORIDE [Concomitant]
     Active Substance: DIPHENHYDRAMINE HYDROCHLORIDE
     Dates: start: 20220518, end: 20220518
  58. DIPHENHYDRAMINE HYDROCHLORIDE [Concomitant]
     Active Substance: DIPHENHYDRAMINE HYDROCHLORIDE
     Dates: start: 20220608, end: 20220608
  59. DIPHENHYDRAMINE HYDROCHLORIDE [Concomitant]
     Active Substance: DIPHENHYDRAMINE HYDROCHLORIDE
     Dates: start: 20220706, end: 20220706
  60. DIPHENHYDRAMINE HYDROCHLORIDE [Concomitant]
     Active Substance: DIPHENHYDRAMINE HYDROCHLORIDE
     Dates: start: 20220802, end: 20220802
  61. DIPHENHYDRAMINE HYDROCHLORIDE [Concomitant]
     Active Substance: DIPHENHYDRAMINE HYDROCHLORIDE
     Dates: start: 20220825, end: 20220825
  62. DIPHENHYDRAMINE HYDROCHLORIDE [Concomitant]
     Active Substance: DIPHENHYDRAMINE HYDROCHLORIDE
     Dates: start: 20220920, end: 20220920
  63. DIPHENHYDRAMINE HYDROCHLORIDE [Concomitant]
     Active Substance: DIPHENHYDRAMINE HYDROCHLORIDE
     Dates: start: 20221011, end: 20221011
  64. DIPHENHYDRAMINE HYDROCHLORIDE [Concomitant]
     Active Substance: DIPHENHYDRAMINE HYDROCHLORIDE
     Dates: start: 20221012, end: 20221012
  65. HEROMBOPAG OLAMINE [Concomitant]
     Dates: start: 20220107, end: 20220113
  66. ESOMEPRAZOLE SODIUM [Concomitant]
     Active Substance: ESOMEPRAZOLE SODIUM
     Dates: start: 20220325, end: 20220325
  67. ESOMEPRAZOLE SODIUM [Concomitant]
     Active Substance: ESOMEPRAZOLE SODIUM
     Dates: start: 20220413, end: 20220413
  68. ESOMEPRAZOLE SODIUM [Concomitant]
     Active Substance: ESOMEPRAZOLE SODIUM
     Dates: start: 20220518, end: 20220518
  69. ESOMEPRAZOLE SODIUM [Concomitant]
     Active Substance: ESOMEPRAZOLE SODIUM
     Dates: start: 20220802, end: 20220802
  70. ESOMEPRAZOLE SODIUM [Concomitant]
     Active Substance: ESOMEPRAZOLE SODIUM
     Dates: start: 20220608, end: 20220608
  71. ESOMEPRAZOLE SODIUM [Concomitant]
     Active Substance: ESOMEPRAZOLE SODIUM
     Dates: start: 20220706, end: 20220706
  72. ESOMEPRAZOLE SODIUM [Concomitant]
     Active Substance: ESOMEPRAZOLE SODIUM
     Dates: start: 20220825, end: 20220825
  73. ESOMEPRAZOLE SODIUM [Concomitant]
     Active Substance: ESOMEPRAZOLE SODIUM
     Dates: start: 20220920, end: 20220920
  74. ESOMEPRAZOLE SODIUM [Concomitant]
     Active Substance: ESOMEPRAZOLE SODIUM
     Dates: start: 20221011, end: 20221011
  75. ESOMEPRAZOLE SODIUM [Concomitant]
     Active Substance: ESOMEPRAZOLE SODIUM
     Dates: start: 20221012, end: 20221012
  76. AMBROXOL HYDROCHLORIDE [Concomitant]
     Active Substance: AMBROXOL HYDROCHLORIDE
     Dates: start: 20211212, end: 20211212
  77. IRON SUCROSE [Concomitant]
     Active Substance: IRON SUCROSE
     Indication: Anaemia
     Dates: start: 20211212, end: 20211212
  78. IRON SUCROSE [Concomitant]
     Active Substance: IRON SUCROSE
     Dates: start: 20211214, end: 20211215
  79. TROPISETRON HYDROCHLORIDE [Concomitant]
     Active Substance: TROPISETRON HYDROCHLORIDE
     Route: 065
     Dates: start: 20220706, end: 20220706
  80. TROPISETRON HYDROCHLORIDE [Concomitant]
     Active Substance: TROPISETRON HYDROCHLORIDE
     Route: 065
     Dates: start: 20220802, end: 20220802
  81. TROPISETRON HYDROCHLORIDE [Concomitant]
     Active Substance: TROPISETRON HYDROCHLORIDE
     Dates: start: 20220107, end: 20220107
  82. TROPISETRON HYDROCHLORIDE [Concomitant]
     Active Substance: TROPISETRON HYDROCHLORIDE
     Dates: start: 20220825, end: 20220825
  83. TROPISETRON HYDROCHLORIDE [Concomitant]
     Active Substance: TROPISETRON HYDROCHLORIDE
     Dates: start: 20220920, end: 20220920
  84. TROPISETRON HYDROCHLORIDE [Concomitant]
     Active Substance: TROPISETRON HYDROCHLORIDE
     Dates: start: 20221011, end: 20221011
  85. OMEPRAZOLE SODIUM [Concomitant]
     Active Substance: OMEPRAZOLE SODIUM
     Dates: start: 20220107, end: 20220107
  86. GRANULOCYTE COLONY-STIMULATING FACTOR NOS [Concomitant]
     Active Substance: GRANULOCYTE COLONY-STIMULATING FACTOR NOS
     Indication: White blood cell count decreased
     Dates: start: 20220714, end: 20220714
  87. GRANULOCYTE COLONY-STIMULATING FACTOR NOS [Concomitant]
     Active Substance: GRANULOCYTE COLONY-STIMULATING FACTOR NOS
     Indication: Neutrophil count decreased
     Dates: start: 20220715, end: 20220715
  88. GRANULOCYTE COLONY-STIMULATING FACTOR NOS [Concomitant]
     Active Substance: GRANULOCYTE COLONY-STIMULATING FACTOR NOS
     Dates: start: 20211211, end: 20211213
  89. GRANULOCYTE COLONY-STIMULATING FACTOR NOS [Concomitant]
     Active Substance: GRANULOCYTE COLONY-STIMULATING FACTOR NOS
     Dates: start: 20220823, end: 20220823
  90. CAFFEIC ACID [Concomitant]
     Active Substance: CAFFEIC ACID
     Indication: Platelet count decreased
     Dates: start: 20211217, end: 20211224

REACTIONS (1)
  - Aspartate aminotransferase increased [Recovered/Resolved]

NARRATIVE: CASE EVENT DATE: 20220106
